FAERS Safety Report 9125135 (Version 1)
Quarter: 2013Q1

REPORT INFORMATION
  Report Type: Spontaneous
  Country: FR (occurrence: FR)
  Receive Date: 20130121
  Receipt Date: 20130121
  Transmission Date: 20140127
  Serious: Yes (Hospitalization)
  Sender: FDA-Public Use
  Company Number: PHHY2013FR004944

PATIENT
  Age: 88 Year
  Sex: Female

DRUGS (10)
  1. COTAREG [Suspect]
     Dosage: 1 DF (160 MG VAL/12.5 MG HCT) DAILY
     Route: 048
     Dates: end: 20121209
  2. FUROSEMIDE [Suspect]
     Dosage: 20 MG, DAILY
     Route: 048
     Dates: end: 20121209
  3. DILTIAZEM [Concomitant]
     Dosage: 1 DF, DAILY
     Dates: end: 20121209
  4. EUPRESSYL [Concomitant]
     Dosage: 1 DF, BID
     Dates: end: 20121209
  5. PRAVASTATIN SODIUM [Concomitant]
     Dosage: 20 MG, UNK
     Route: 048
     Dates: end: 20121209
  6. PREVISCAN [Concomitant]
     Indication: ATRIAL FIBRILLATION
     Dosage: 10 MG, DAILY
     Dates: end: 20121209
  7. NITRIDERM [Concomitant]
     Dosage: 1 DF DAILY
     Route: 062
     Dates: end: 20121209
  8. PANTOPRAZOLE [Concomitant]
     Dosage: 20 MG, DAILY
     Route: 048
     Dates: end: 20121209
  9. PARACETAMOL [Concomitant]
     Dosage: 1.5 G, DAILY
     Route: 048
     Dates: end: 20121209
  10. SINGULAIR [Concomitant]
     Dosage: 1 DF DAILY
     Route: 048
     Dates: end: 20121209

REACTIONS (3)
  - Renal failure acute [Recovered/Resolved]
  - Anuria [Unknown]
  - Hyperkalaemia [Recovered/Resolved]
